FAERS Safety Report 4917214-4 (Version None)
Quarter: 2006Q1

REPORT INFORMATION
  Report Type: 
  Country: None (occurrence: None)
  Receive Date: 20060215
  Receipt Date: 20060206
  Transmission Date: 20060701
  Serious: Yes (Other)
  Sender: FDA-Public Use
  Company Number: 2005169917

PATIENT
  Age: 64 Year
  Sex: Female
  Weight: 62.5964 kg

DRUGS (2)
  1. ACCUPRIL [Suspect]
     Indication: HYPERTENSION
     Dosage: 40 MG (40 MG, 1 IN 1 D), ORAL ABOUT 5 YEARS AGO
     Route: 048
  2. QUINAPRIL HCL [Suspect]
     Indication: HYPERTENSION
     Dosage: 40 MG (40 MG, 1 IN 1 D), ORAL
     Route: 048
     Dates: start: 20050101

REACTIONS (5)
  - BLOOD PRESSURE INCREASED [None]
  - BREAST CANCER FEMALE [None]
  - PHARMACEUTICAL PRODUCT COMPLAINT [None]
  - THERAPEUTIC RESPONSE UNEXPECTED WITH DRUG SUBSTITUTION [None]
  - WEIGHT FLUCTUATION [None]
